FAERS Safety Report 16261913 (Version 4)
Quarter: 2019Q2

REPORT INFORMATION
  Report Type: Spontaneous
  Country: FR (occurrence: FR)
  Receive Date: 20190501
  Receipt Date: 20190515
  Transmission Date: 20190711
  Serious: Yes (Other)
  Sender: FDA-Public Use
  Company Number: FR-PFIZER INC-2019183666

PATIENT
  Age: 87 Year
  Sex: Female

DRUGS (15)
  1. PARACETAMOL [Concomitant]
     Active Substance: ACETAMINOPHEN
     Dosage: 1 GRAM
     Route: 065
  2. LOVENOX [Concomitant]
     Active Substance: ENOXAPARIN SODIUM
     Dosage: UNK
     Route: 065
     Dates: start: 20160711
  3. METEOSPASMYL [Concomitant]
     Dosage: UNK
     Route: 065
  4. PANTOPRAZOLE [Suspect]
     Active Substance: PANTOPRAZOLE
     Indication: GASTROOESOPHAGEAL REFLUX DISEASE
     Dosage: UNK
     Route: 048
     Dates: start: 20160727, end: 20160801
  5. OMNIPAQUE [Suspect]
     Active Substance: IOHEXOL
     Indication: COMPUTERISED TOMOGRAM
     Dosage: 350 MILLIGRAM
     Route: 042
     Dates: start: 20160729, end: 20160729
  6. OMNIPAQUE [Suspect]
     Active Substance: IOHEXOL
     Indication: COMPUTERISED TOMOGRAM ABDOMEN
  7. KENZEN [Concomitant]
     Active Substance: CANDESARTAN
     Dosage: 4 MILLIGRAM
     Route: 065
  8. CORDARONE [Suspect]
     Active Substance: AMIODARONE HYDROCHLORIDE
     Indication: TACHYCARDIA
     Dosage: 200 MILLIGRAM, UNK
     Route: 048
     Dates: start: 20160724, end: 20160731
  9. HEMIGOXINE NATIVELLE [Suspect]
     Active Substance: DIGOXIN
     Indication: TACHYCARDIA
     Dosage: 0.13 MILLIGRAM
     Route: 048
     Dates: start: 20160716, end: 20160727
  10. NATIVELLE DIGOXIN [Concomitant]
     Dosage: 125 MILLIGRAM
     Route: 065
     Dates: start: 20160716
  11. OMNIPAQUE [Suspect]
     Active Substance: IOHEXOL
     Indication: COMPUTERISED TOMOGRAM THORAX
  12. PASSIFLORE [Concomitant]
     Dosage: UNK
     Route: 065
  13. OMNIPAQUE [Suspect]
     Active Substance: IOHEXOL
     Indication: COMPUTERISED TOMOGRAM PELVIS
  14. TENORMINE [Concomitant]
     Active Substance: ATENOLOL
     Dosage: 50 MILLIGRAM
     Route: 065
  15. PANTOPRAZOLE [Suspect]
     Active Substance: PANTOPRAZOLE
     Dosage: UNK
     Route: 048

REACTIONS (1)
  - Drug reaction with eosinophilia and systemic symptoms [Recovered/Resolved]

NARRATIVE: CASE EVENT DATE: 20160729
